FAERS Safety Report 7658213-1 (Version None)
Quarter: 2011Q3

REPORT INFORMATION
  Report Type: 
  Country: None (occurrence: None)
  Receive Date: 20110805
  Receipt Date: 20110714
  Transmission Date: 20111222
  Serious: Yes (Hospitalization, Other)
  Sender: FDA-Public Use
  Company Number: FI-UCBSA-038122

PATIENT
  Sex: Male

DRUGS (6)
  1. CIMZIA [Suspect]
     Indication: RHEUMATOID ARTHRITIS
     Route: 058
     Dates: start: 20110120, end: 20110413
  2. ALENDRONATE SODIUM [Concomitant]
     Indication: OSTEOPOROSIS
     Route: 048
  3. ATENOBLOCK [Concomitant]
     Indication: HYPERTENSION
     Route: 048
  4. ZANDIP [Concomitant]
     Indication: HYPERTENSION
     Route: 048
  5. SULFASALAZINE [Concomitant]
     Indication: JUVENILE ARTHRITIS
     Route: 048
     Dates: start: 20040201
  6. SOLOMET [Concomitant]
     Indication: JUVENILE ARTHRITIS
     Route: 048

REACTIONS (1)
  - HERPES ZOSTER OPHTHALMIC [None]
